FAERS Safety Report 20299108 (Version 1)
Quarter: 2022Q1

REPORT INFORMATION
  Report Type: Spontaneous
  Country: US (occurrence: None)
  Receive Date: 20220104
  Receipt Date: 20220104
  Transmission Date: 20220424
  Serious: Yes (Life-Threatening)
  Sender: FDA-Public Use
  Company Number: None

PATIENT
  Age: 0 Day
  Sex: Male
  Weight: 1.62 kg

DRUGS (1)
  1. CUROSURF [Suspect]
     Active Substance: PORACTANT ALFA
     Indication: Neonatal respiratory distress syndrome
     Dosage: FREQUENCY : ONCE;?
     Route: 007
     Dates: start: 20220103, end: 20220103

REACTIONS (7)
  - Product physical consistency issue [None]
  - Product gel formation [None]
  - Endotracheal intubation complication [None]
  - Heart rate decreased [None]
  - Oxygen saturation decreased [None]
  - Dyspnoea [None]
  - Procedural complication [None]

NARRATIVE: CASE EVENT DATE: 20220103
